FAERS Safety Report 20912012 (Version 1)
Quarter: 2022Q2

REPORT INFORMATION
  Report Type: Spontaneous
  Country: US (occurrence: None)
  Receive Date: 20220603
  Receipt Date: 20220603
  Transmission Date: 20220721
  Serious: Yes (Other)
  Sender: FDA-Public Use
  Company Number: None

PATIENT
  Age: 57 Year
  Sex: Male
  Weight: 60.75 kg

DRUGS (17)
  1. DEXTROAMPHET SACCHARAT, AMPHET ASPARTATE, DEXTROAMPHET SULFATE AND AMP [Suspect]
     Active Substance: AMPHETAMINE ASPARTATE\AMPHETAMINE SULFATE\DEXTROAMPHETAMINE SACCHARATE\DEXTROAMPHETAMINE SULFATE
     Indication: Attention deficit hyperactivity disorder
     Dosage: OTHER QUANTITY : 1 TABLET(S);?FREQUENCY : 3 TIMES A DAY;?
     Route: 048
  2. Benzitropine [Concomitant]
  3. AMLODIPINE [Concomitant]
     Active Substance: AMLODIPINE BESYLATE
  4. prescription vitamin D [Concomitant]
  5. HALOPERIDOL [Concomitant]
  6. ATORVASTATIN [Concomitant]
     Active Substance: ATORVASTATIN
  7. TRAZODONE [Concomitant]
     Active Substance: TRAZODONE HYDROCHLORIDE
  8. VITAMIN A [Concomitant]
     Active Substance: VITAMIN A
  9. C [Concomitant]
  10. VITAMIN B12 [Concomitant]
     Active Substance: CYANOCOBALAMIN
  11. BIOTIN [Concomitant]
     Active Substance: BIOTIN
  12. POTASSIUM GLUCONATE [Concomitant]
     Active Substance: POTASSIUM GLUCONATE
  13. LUTEIN [Concomitant]
     Active Substance: LUTEIN
  14. ZINC [Concomitant]
     Active Substance: ZINC
  15. FOLIC ACID [Concomitant]
     Active Substance: FOLIC ACID
  16. MAGNESIUM [Concomitant]
     Active Substance: MAGNESIUM
  17. IRON [Concomitant]
     Active Substance: IRON

REACTIONS (9)
  - Product complaint [None]
  - Suspected product tampering [None]
  - Somnolence [None]
  - Disturbance in attention [None]
  - Speech disorder [None]
  - Epistaxis [None]
  - Headache [None]
  - Dyspnoea [None]
  - Product quality issue [None]

NARRATIVE: CASE EVENT DATE: 20220523
